FAERS Safety Report 7755238-2 (Version None)
Quarter: 2011Q3

REPORT INFORMATION
  Report Type: 
  Country: None (occurrence: None)
  Receive Date: 20110914
  Receipt Date: 20110905
  Transmission Date: 20111222
  Serious: Yes (Other)
  Sender: FDA-Public Use
  Company Number: 2009JP007145

PATIENT
  Age: 48 Year
  Sex: Male
  Weight: 62.8 kg

DRUGS (41)
  1. CLINDAMYCIN HYDROCHLORIDE [Suspect]
     Indication: C-REACTIVE PROTEIN INCREASED
     Dosage: 600 MG /D, ORAL
     Route: 048
     Dates: start: 20090615, end: 20090622
  2. COTRIM [Concomitant]
  3. EXCEGRAN 9ZONISAMIDE) [Concomitant]
  4. ISONIAZID [Concomitant]
  5. KETOPROFEN [Concomitant]
  6. ALDACTONE [Concomitant]
  7. TORSEMIDE [Concomitant]
  8. ALLOPURINOL [Concomitant]
  9. FOSAMAX [Concomitant]
  10. LEVOTHYROXINE SODIUM [Concomitant]
  11. PHENOBARBITAL TAB [Concomitant]
  12. CEFAZOLIN [Concomitant]
  13. ROPION (FLURBIPROFEN AXETIL) [Concomitant]
  14. MINOCYCLINE HYDROCHLORIDE [Suspect]
     Indication: C-REACTIVE PROTEIN INCREASED
     Dosage: 200 MG, /D, ORAL
     Route: 048
     Dates: start: 20090615, end: 20090622
  15. PYDOXAL (PYRIDOXAL PHOSPHATE) [Concomitant]
  16. VITAMEDIN (BENFOTIAMINE) [Concomitant]
  17. ESPO (EPOETIN ALFA) [Concomitant]
  18. LULICON (LULICONAZOLE) [Concomitant]
  19. AVELOX [Concomitant]
  20. MINOCYCLINE (MINOCYCLINE HYDROCHLORIDE) [Concomitant]
  21. SUMILU (FELBINAC) [Concomitant]
  22. MEIACT (CEFDITOREN PIVOXIL) [Concomitant]
  23. GENTAMICIN SULFATE [Concomitant]
  24. ALINAMIN-F (FURSULTIAMINE HYDROCHLORIDE) [Concomitant]
  25. FAMOTIDINE [Concomitant]
  26. PREDNISOLONE [Suspect]
     Indication: LUPUS NEPHRITIS
     Dosage: 15 MG, /D, ORAL; 12/5 MG /D, ORAL; 10MG, /D, ORAL
     Route: 048
     Dates: start: 20100203
  27. PREDNISOLONE [Suspect]
     Indication: LUPUS NEPHRITIS
     Dosage: 15 MG, /D, ORAL; 12/5 MG /D, ORAL; 10MG, /D, ORAL
     Route: 048
     Dates: end: 20091013
  28. PREDNISOLONE [Suspect]
     Indication: LUPUS NEPHRITIS
     Dosage: 15 MG, /D, ORAL; 12/5 MG /D, ORAL; 10MG, /D, ORAL
     Route: 048
     Dates: start: 20091014, end: 20100202
  29. LOSARTAN POTASSIUM [Concomitant]
  30. LASIX [Concomitant]
  31. CLINDAMYCIN PHOSPHATE [Concomitant]
  32. TACROLIMUS [Suspect]
     Indication: LUPUS NEPHRITIS
     Dosage: 3 MG, /D, ORAL
     Route: 048
     Dates: start: 20080215
  33. INDAPAMIDE [Concomitant]
  34. PRAVASTATIN [Concomitant]
  35. SELTOUCH (FELBINAC) [Concomitant]
  36. FERROMIA (FERROUS SODIUM CITRATE) [Concomitant]
  37. FOLIC ACID [Concomitant]
  38. SELBEX (TEPRENONE) [Concomitant]
  39. WARFARIN [Concomitant]
  40. PHENYTOIN [Concomitant]
  41. POSTERISAN FORTE (ESCHERICHIA COLI, HYDROCORTISONE) [Concomitant]

REACTIONS (8)
  - PRURITUS [None]
  - PNEUMONIA [None]
  - RECTAL PROLAPSE [None]
  - C-REACTIVE PROTEIN INCREASED [None]
  - DRY SKIN [None]
  - HYPOKALAEMIA [None]
  - CLAVICLE FRACTURE [None]
  - PROTHROMBIN TIME PROLONGED [None]
